FAERS Safety Report 6319396-9 (Version None)
Quarter: 2009Q3

REPORT INFORMATION
  Report Type: 
  Country: None (occurrence: None)
  Receive Date: 20090822
  Receipt Date: 20080826
  Transmission Date: 20100115
  Serious: No
  Sender: FDA-Public Use
  Company Number: US-ABBOTT-08P-163-0472542-00

PATIENT
  Age: 67 Year
  Sex: Female
  Weight: 72.64 kg

DRUGS (3)
  1. NIASPAN [Suspect]
     Indication: BLOOD CHOLESTEROL INCREASED
     Route: 048
     Dates: start: 20080129
  2. SYNTHROID [Suspect]
     Indication: HYPOTHYROIDISM
     Dosage: 1-50MCG TABLET AND 1-25 MCG TABLET
     Route: 048
     Dates: start: 20080424
  3. ASPIRIN [Concomitant]
     Indication: FLUSHING
     Route: 048
     Dates: start: 20080501

REACTIONS (4)
  - DIARRHOEA [None]
  - ERYTHEMA [None]
  - FLUSHING [None]
  - PRURITUS [None]
